FAERS Safety Report 7782549-7 (Version None)
Quarter: 2011Q3

REPORT INFORMATION
  Report Type: 
  Country: None (occurrence: None)
  Receive Date: 20110928
  Receipt Date: 20110919
  Transmission Date: 20111222
  Serious: Yes (Hospitalization, Other)
  Sender: FDA-Public Use
  Company Number: US-CELGENEUS-163-21880-11090061

PATIENT
  Sex: Female

DRUGS (28)
  1. REVLIMID [Suspect]
     Dosage: 10 MILLIGRAM
     Route: 048
     Dates: start: 20110501, end: 20110811
  2. NORVASC [Concomitant]
     Dosage: 10 MILLIGRAM
     Route: 065
  3. GABAPENTIN [Concomitant]
     Dosage: 100 MILLIGRAM
     Route: 065
  4. LAXATIVE [Concomitant]
     Route: 065
  5. POTASSIUM [Concomitant]
     Route: 065
  6. NITROGLYCERIN [Concomitant]
     Route: 065
  7. METOPROLOL TARTRATE [Concomitant]
     Dosage: 50 MILLIGRAM
     Route: 065
  8. LOPRESSOR [Concomitant]
     Route: 065
  9. POTASSIUM CHLORIDE [Concomitant]
     Dosage: 20 MILLIEQUIVALENTS
     Route: 065
  10. OXYBUTYNIN [Concomitant]
     Route: 065
  11. REVLIMID [Suspect]
     Indication: MYELODYSPLASTIC SYNDROME
     Dosage: 10 MILLIGRAM
     Route: 048
     Dates: start: 20101010
  12. SYNTHROID [Concomitant]
     Dosage: 50 MICROGRAM
     Route: 065
  13. ONDANSETRON HCL [Concomitant]
     Indication: NAUSEA
     Dosage: 8 MILLIGRAM
     Route: 048
  14. FOLIC ACID [Concomitant]
     Dosage: 1 MILLIGRAM
     Route: 065
  15. ERGOCALCIFEROL [Concomitant]
     Dosage: 50000 UNIT
     Route: 065
  16. SIMVASTATIN [Concomitant]
     Route: 065
  17. ONDANSETRON HCL [Concomitant]
     Indication: VOMITING
  18. PERCOCET [Concomitant]
     Indication: PAIN
     Dosage: 5-325 MG
     Route: 065
  19. VALIUM [Concomitant]
     Dosage: 5 MILLIGRAM
     Route: 065
  20. MAGNESIUM OXIDE [Concomitant]
     Dosage: 400 MILLIGRAM
     Route: 065
  21. LEVAQUIN [Concomitant]
     Dosage: 250 MILLIGRAM
     Route: 065
  22. MEGACE [Concomitant]
     Dosage: 40 MILLIGRAM/MILLILITERS
     Route: 048
  23. CYMBALTA [Concomitant]
     Dosage: 30 MILLIGRAM
     Route: 065
  24. SLOW-MAG [Concomitant]
     Dosage: 64 MILLIGRAM
     Route: 065
  25. LISINOPRIL [Concomitant]
     Dosage: 2.5 MILLIGRAM
     Route: 065
  26. ACTOS [Concomitant]
     Dosage: 15 MILLIGRAM
     Route: 065
  27. LIPITOR [Concomitant]
     Dosage: 20 MILLIGRAM
     Route: 065
  28. ALLOPURINOL [Concomitant]
     Dosage: 300 MILLIGRAM
     Route: 065

REACTIONS (1)
  - DIVERTICULITIS [None]
